FAERS Safety Report 19936888 (Version 1)
Quarter: 2021Q4

REPORT INFORMATION
  Report Type: Spontaneous
  Country: US (occurrence: IN)
  Receive Date: 20211009
  Receipt Date: 20211009
  Transmission Date: 20220303
  Serious: Yes (Other)
  Sender: FDA-Public Use
  Company Number: US-AMGEN-INDSP2021153541

PATIENT
  Age: 35 Year
  Sex: Female

DRUGS (12)
  1. XGEVA [Suspect]
     Active Substance: DENOSUMAB
     Indication: Breast cancer stage IV
     Dosage: UNK
     Route: 065
  2. PACLITAXEL [Concomitant]
     Active Substance: PACLITAXEL
  3. CARBOPLATIN [Concomitant]
     Active Substance: CARBOPLATIN
  4. ZOLEDRONIC [Concomitant]
     Active Substance: ZOLEDRONIC ACID
  5. METHOTREXATE [Concomitant]
     Active Substance: METHOTREXATE
  6. FLUOROURACIL [Concomitant]
     Active Substance: FLUOROURACIL
  7. CISPLATIN [Concomitant]
     Active Substance: CISPLATIN
  8. GEMCITABINE [Concomitant]
     Active Substance: GEMCITABINE
  9. TAMOXIFEN [Concomitant]
     Active Substance: TAMOXIFEN
  10. HALAVEN [Concomitant]
     Active Substance: ERIBULIN MESYLATE
  11. CYCLOPHOSPHAMIDE [Concomitant]
     Active Substance: CYCLOPHOSPHAMIDE
  12. TRODELVY [Concomitant]
     Active Substance: SACITUZUMAB GOVITECAN-HZIY
     Dosage: 180 MILLIGRAM

REACTIONS (3)
  - Breast cancer stage IV [Unknown]
  - Hypoacusis [Unknown]
  - Back pain [Unknown]
